FAERS Safety Report 13806639 (Version 7)
Quarter: 2018Q2

REPORT INFORMATION
  Report Type: Spontaneous
  Country: IT (occurrence: IT)
  Receive Date: 20170728
  Receipt Date: 20180411
  Transmission Date: 20180711
  Serious: Yes (Hospitalization, Other)
  Sender: FDA-Public Use
  Company Number: IT-PFIZER INC-2017327480

PATIENT
  Age: 61 Year
  Sex: Female

DRUGS (6)
  1. LORAZEPAM. [Suspect]
     Active Substance: LORAZEPAM
     Dosage: 125 MG, TOTAL
     Route: 048
     Dates: start: 20170629, end: 20170629
  2. TALOFEN [Interacting]
     Active Substance: PROMAZINE HYDROCHLORIDE
     Dosage: 90 ML, TOTAL
     Route: 048
     Dates: start: 20170629, end: 20170629
  3. TALOFEN [Interacting]
     Active Substance: PROMAZINE HYDROCHLORIDE
     Dosage: 60 GTT, UNK
  4. VENLAFAXINE HCL [Interacting]
     Active Substance: VENLAFAXINE HYDROCHLORIDE
     Dosage: 1650 MG, TOTAL
     Route: 048
     Dates: start: 20170629, end: 20170629
  5. LORAZEPAM. [Interacting]
     Active Substance: LORAZEPAM
     Dosage: 2.5 MG, 1X/DAY
  6. EUTIROX [Interacting]
     Active Substance: LEVOTHYROXINE SODIUM
     Dosage: 3375 MG, TOTAL
     Route: 048
     Dates: start: 20170629, end: 20170629

REACTIONS (4)
  - Slow speech [Recovered/Resolved]
  - Intentional self-injury [Recovered/Resolved]
  - Alcohol interaction [Recovered/Resolved]
  - Drug abuse [Recovered/Resolved]

NARRATIVE: CASE EVENT DATE: 20170630
